FAERS Safety Report 8524823-2 (Version None)
Quarter: 2012Q3

REPORT INFORMATION
  Report Type: 
  Country: None (occurrence: None)
  Receive Date: 20120720
  Receipt Date: 20120718
  Transmission Date: 20120928
  Serious: Yes (Hospitalization)
  Sender: FDA-Public Use
  Company Number: FR-GLAXOSMITHKLINE-B0815455A

PATIENT
  Sex: Female

DRUGS (1)
  1. VALACYCLOVIR HYDROCHLORIDE [Suspect]
     Indication: ORAL HERPES
     Dosage: 2000MG SINGLE DOSE
     Route: 048
     Dates: start: 20120530, end: 20120530

REACTIONS (5)
  - RENAL FAILURE ACUTE [None]
  - NAUSEA [None]
  - HEADACHE [None]
  - BACK PAIN [None]
  - ABDOMINAL PAIN [None]
